FAERS Safety Report 11315740 (Version 2)
Quarter: 2015Q3

REPORT INFORMATION
  Report Type: Report from Study
  Country: CA (occurrence: CA)
  Receive Date: 20150728
  Receipt Date: 20150821
  Transmission Date: 20151125
  Serious: Yes (Other)
  Sender: FDA-Public Use
  Company Number: CA-ABBVIE-15K-028-1417552-00

PATIENT
  Sex: Female
  Weight: 53.12 kg

DRUGS (2)
  1. HUMIRA [Suspect]
     Active Substance: ADALIMUMAB
     Indication: CROHN^S DISEASE
     Route: 058
     Dates: start: 20140718, end: 201504
  2. IMURAN [Concomitant]
     Active Substance: AZATHIOPRINE
     Indication: CROHN^S DISEASE
     Route: 048

REACTIONS (5)
  - Intestinal stenosis [Recovering/Resolving]
  - Intestinal fibrosis [Recovering/Resolving]
  - Small intestinal obstruction [Recovered/Resolved]
  - Abdominal adhesions [Recovered/Resolved]
  - Gastrointestinal pain [Recovered/Resolved]
